FAERS Safety Report 11581108 (Version 1)
Quarter: 2015Q4

REPORT INFORMATION
  Report Type: Spontaneous
  Country: US (occurrence: US)
  Receive Date: 20151001
  Receipt Date: 20151001
  Transmission Date: 20160304
  Serious: Yes (Other)
  Sender: FDA-Public Use
  Company Number: US-ROCHE-709085

PATIENT
  Sex: Female

DRUGS (2)
  1. COPEGUS [Suspect]
     Active Substance: RIBAVIRIN
     Indication: HEPATITIS C
     Route: 065
  2. PEGASYS [Suspect]
     Active Substance: PEGINTERFERON ALFA-2A
     Indication: HEPATITIS C
     Dosage: FORM: PREFILLED SYRINGE
     Route: 065

REACTIONS (9)
  - Suicidal ideation [Recovered/Resolved]
  - Dyspnoea [Unknown]
  - Cough [Unknown]
  - Depression [Unknown]
  - Drug dose omission [Unknown]
  - Nausea [Not Recovered/Not Resolved]
  - Epistaxis [Unknown]
  - Stress [Unknown]
  - Chromaturia [Unknown]
